FAERS Safety Report 5560912-2 (Version None)
Quarter: 2007Q4

REPORT INFORMATION
  Report Type: 
  Country: None (occurrence: None)
  Receive Date: 20071215
  Receipt Date: 20071127
  Transmission Date: 20080405
  Serious: Yes (Other)
  Sender: FDA-Public Use
  Company Number: US-ABBOTT-07P-163-0426685-00

PATIENT
  Age: 30 Year
  Sex: Male

DRUGS (4)
  1. HUMIRA [Suspect]
     Indication: PSORIATIC ARTHROPATHY
     Route: 058
  2. ISONIAZID [Concomitant]
     Indication: TUBERCULOSIS
  3. RIFAMPICIN [Concomitant]
     Indication: TUBERCULOSIS
  4. OTHER MEDICATIONS [Concomitant]
     Indication: TUBERCULOSIS

REACTIONS (1)
  - PULMONARY TUBERCULOSIS [None]
